FAERS Safety Report 5634201-1 (Version None)
Quarter: 2008Q1

REPORT INFORMATION
  Report Type: 
  Country: None (occurrence: None)
  Receive Date: 20080219
  Receipt Date: 20080205
  Transmission Date: 20080703
  Serious: Yes (Other)
  Sender: FDA-Public Use
  Company Number: 8025269

PATIENT
  Age: 8 Year
  Sex: Male

DRUGS (4)
  1. METHYLPHENIDATE HCL [Suspect]
     Indication: ATTENTION DEFICIT/HYPERACTIVITY DISORDER
     Dosage: 20 MG 1/D
  2. METHYLPHENIDATE HCL [Suspect]
     Indication: ATTENTION DEFICIT/HYPERACTIVITY DISORDER
     Dosage: 20 MG 1/D
     Dates: start: 20070122, end: 20070211
  3. METHYLPHENIDATE HCL [Suspect]
     Indication: ATTENTION DEFICIT/HYPERACTIVITY DISORDER
     Dosage: 25 MG /D
     Dates: start: 20070212, end: 20070419
  4. METHYLPHENIDATE HCL [Suspect]
     Indication: ATTENTION DEFICIT/HYPERACTIVITY DISORDER
     Dosage: 20 MG 1/D
     Dates: start: 20070420

REACTIONS (5)
  - DRUG EFFECT DECREASED [None]
  - GASTROINTESTINAL PAIN [None]
  - HEADACHE [None]
  - ONYCHOPHAGIA [None]
  - TIC [None]
